FAERS Safety Report 8183172-5 (Version None)
Quarter: 2012Q1

REPORT INFORMATION
  Report Type: 
  Country: None (occurrence: None)
  Receive Date: 20120127
  Receipt Date: 20111003
  Transmission Date: 20120608
  Serious: Yes (Other)
  Sender: FDA-Public Use
  Company Number: AMAG201100208

PATIENT
  Age: 67 Year
  Sex: Female
  Weight: 67.1 kg

DRUGS (17)
  1. POTASSIUM CHLORIDE [Concomitant]
  2. IBUPROFEN [Concomitant]
  3. ALLEGRA [Concomitant]
  4. LYRICA [Concomitant]
  5. GEMZAR [Concomitant]
  6. OLMESARTAN MEDOXOMIL [Concomitant]
  7. PROTONIX [Concomitant]
  8. BENADRYL [Concomitant]
  9. ANZEMET [Concomitant]
  10. OXYCODONE HCL [Concomitant]
  11. ZOFRAN [Concomitant]
  12. CARBOPLATIN [Concomitant]
  13. FERAHEME [Suspect]
     Indication: IRON DEFICIENCY ANAEMIA
     Dosage: 15 MG, IV BOLUS
     Route: 040
     Dates: start: 20110908, end: 20110908
  14. PROZAC [Concomitant]
  15. AMBIEN OR (ZOLPIDEM TARTRATE) [Concomitant]
  16. FENTANYL [Concomitant]
  17. DECADRON [Concomitant]

REACTIONS (12)
  - PAIN [None]
  - BACK PAIN [None]
  - HYPERTENSION [None]
  - ABDOMINAL PAIN [None]
  - HYPERSENSITIVITY [None]
  - CHEST PAIN [None]
  - DYSPNOEA [None]
  - DIZZINESS [None]
  - HYPOTENSION [None]
  - OXYGEN SATURATION DECREASED [None]
  - FLUSHING [None]
  - CHEST DISCOMFORT [None]
